FAERS Safety Report 17983583 (Version 1)
Quarter: 2020Q3

REPORT INFORMATION
  Report Type: Spontaneous
  Country: HU (occurrence: HU)
  Receive Date: 20200706
  Receipt Date: 20200706
  Transmission Date: 20201103
  Serious: Yes (Other)
  Sender: FDA-Public Use
  Company Number: HU-ASTRAZENECA-2020SE68921

PATIENT
  Age: 6809 Day
  Sex: Female
  Weight: 78 kg

DRUGS (5)
  1. MONTELUCAST [Concomitant]
     Active Substance: MONTELUKAST SODIUM
     Indication: ASTHMA
  2. FASENRA [Suspect]
     Active Substance: BENRALIZUMAB
     Indication: ASTHMA
     Dosage: FIRST THREE INJECTION 30 MG EVERY FOUR WEEKS TEN EVERY EIGHT WEEKS
     Route: 058
     Dates: start: 20200310, end: 20200511
  3. FOSTER [Concomitant]
     Active Substance: BECLOMETHASONE\FORMOTEROL
     Indication: ASTHMA
     Route: 055
  4. RETAPHYLLIN [Concomitant]
     Indication: ASTHMA
  5. VENTOLIN [Concomitant]
     Active Substance: ALBUTEROL SULFATE
     Dosage: AS REQUIRED

REACTIONS (6)
  - Hypersensitivity [Unknown]
  - Peripheral swelling [Unknown]
  - Swelling face [Unknown]
  - Generalised oedema [Recovered/Resolved]
  - Eye swelling [Unknown]
  - Rash [Recovered/Resolved]

NARRATIVE: CASE EVENT DATE: 20200509
